FAERS Safety Report 6032292-X (Version None)
Quarter: 2009Q1

REPORT INFORMATION
  Report Type: 
  Country: None (occurrence: None)
  Receive Date: 20090108
  Receipt Date: 20081231
  Transmission Date: 20090719
  Serious: Yes (Hospitalization, Other)
  Sender: FDA-Public Use
  Company Number: GB-RANBAXY-2008RR-20276

PATIENT
  Sex: Male
  Weight: 71.5 kg

DRUGS (12)
  1. CLARITHROMYCIN [Suspect]
     Indication: MYCOBACTERIUM AVIUM COMPLEX INFECTION
     Dosage: 500 MG, BID
     Route: 048
     Dates: start: 20080905, end: 20081016
  2. DIAZEPAM [Suspect]
     Indication: INSOMNIA
     Dosage: 5 MG, QD
     Route: 048
     Dates: start: 20080522, end: 20081204
  3. EFAVIRENZ [Suspect]
     Indication: HIV INFECTION CDC GROUP IV SUBGROUP E
     Dosage: 600 MG, QD
     Route: 048
     Dates: start: 20080522, end: 20080801
  4. ATRIPLA [Suspect]
     Indication: HIV INFECTION CDC GROUP IV SUBGROUP E
     Dosage: 1 DF, QD
     Route: 048
     Dates: start: 20080801, end: 20081016
  5. DAPSONE [Suspect]
     Indication: PNEUMOCYSTIS JIROVECI PNEUMONIA
     Dosage: 100 MG, QD
     Route: 048
     Dates: start: 20080801, end: 20081031
  6. ETHAMBUTOL [Suspect]
     Indication: MYCOBACTERIUM AVIUM COMPLEX INFECTION
     Dosage: 1 G, QD
     Route: 048
     Dates: start: 20080905, end: 20081016
  7. RIFABUTIN [Suspect]
     Indication: MYCOBACTERIUM AVIUM COMPLEX INFECTION
     Dosage: 450 MG, QD
     Route: 048
     Dates: start: 20080905, end: 20081016
  8. TRUVADA [Suspect]
     Indication: HIV INFECTION CDC GROUP IV SUBGROUP E
     Dosage: 1 DF, QD
     Route: 048
     Dates: start: 20080522, end: 20080801
  9. BECLOMETHASONE DIPROPIONATE [Concomitant]
  10. CETIRIZINE HCL [Concomitant]
  11. ALBUTEROL [Concomitant]
  12. TERBINAFINE HCL [Concomitant]

REACTIONS (6)
  - ASTHENIA [None]
  - CARDIAC ARREST [None]
  - CONFUSIONAL STATE [None]
  - HYPERKALAEMIA [None]
  - LOSS OF CONSCIOUSNESS [None]
  - RENAL TUBULAR NECROSIS [None]
